FAERS Safety Report 7691394-2 (Version None)
Quarter: 2011Q3

REPORT INFORMATION
  Report Type: 
  Country: None (occurrence: None)
  Receive Date: 20110818
  Receipt Date: 20110808
  Transmission Date: 20111222
  Serious: Yes (Other)
  Sender: FDA-Public Use
  Company Number: PHHY2011AU56270

PATIENT
  Sex: Female

DRUGS (3)
  1. TEGRETOL [Suspect]
     Dosage: UNK UKN, UNK
     Route: 048
     Dates: start: 20090101
  2. TEGRETOL [Suspect]
     Dosage: UNK UKN, UNK
     Route: 048
  3. TEGRETOL [Suspect]
     Dosage: UNK UKN, UNK
     Route: 048

REACTIONS (3)
  - RASH [None]
  - LIP SWELLING [None]
  - ILL-DEFINED DISORDER [None]
